FAERS Safety Report 8388216-3 (Version None)
Quarter: 2012Q2

REPORT INFORMATION
  Report Type: 
  Country: None (occurrence: None)
  Receive Date: 20120525
  Receipt Date: 20120517
  Transmission Date: 20120825
  Serious: Yes (Hospitalization, Other)
  Sender: FDA-Public Use
  Company Number: SV-ELI_LILLY_AND_COMPANY-SV201205007046

PATIENT
  Sex: Female

DRUGS (3)
  1. HUMALOG [Suspect]
     Dosage: UNK
  2. LANTUS [Concomitant]
  3. HUMALOG MIX 75/25 [Suspect]
     Dosage: UNK

REACTIONS (4)
  - INTENTIONAL DRUG MISUSE [None]
  - WRONG DRUG ADMINISTERED [None]
  - HYPOGLYCAEMIA [None]
  - DIABETIC COMPLICATION [None]
